FAERS Safety Report 14739954 (Version 2)
Quarter: 2018Q2

REPORT INFORMATION
  Report Type: Spontaneous
  Country: PL (occurrence: PL)
  Receive Date: 20180410
  Receipt Date: 20180419
  Transmission Date: 20180711
  Serious: Yes (Other)
  Sender: FDA-Public Use
  Company Number: PL-ROCHE-2098809

PATIENT
  Age: 64 Year
  Sex: Female
  Weight: 84 kg

DRUGS (8)
  1. PERJETA [Suspect]
     Active Substance: PERTUZUMAB
     Indication: HER-2 POSITIVE BREAST CANCER
     Dosage: FIRST ADMINISTRATION
     Route: 042
     Dates: start: 20171110
  2. PERJETA [Suspect]
     Active Substance: PERTUZUMAB
     Indication: BREAST CANCER
     Dosage: NEXT ADMINISTRATIONS
     Route: 042
  3. TAMOXIFEN [Concomitant]
     Active Substance: TAMOXIFEN
     Route: 065
     Dates: start: 201204, end: 201410
  4. HERCEPTIN [Suspect]
     Active Substance: TRASTUZUMAB
     Indication: HER-2 POSITIVE BREAST CANCER
     Dosage: FIRST ADMINISTRATION
     Route: 042
     Dates: start: 20171110
  5. ANASTROZOLE. [Concomitant]
     Active Substance: ANASTROZOLE
     Route: 065
     Dates: start: 20160210, end: 20171007
  6. HERCEPTIN [Suspect]
     Active Substance: TRASTUZUMAB
     Indication: BREAST CANCER
     Route: 065
     Dates: start: 20120711, end: 20130703
  7. DOCETAXEL. [Concomitant]
     Active Substance: DOCETAXEL
     Indication: HER-2 POSITIVE BREAST CANCER
     Route: 042
     Dates: start: 20171110, end: 20171205
  8. HERCEPTIN [Suspect]
     Active Substance: TRASTUZUMAB
     Indication: BREAST CANCER
     Dosage: NEXT ADMINISTRATION
     Route: 042
     Dates: start: 20171110

REACTIONS (9)
  - Asthenia [Recovered/Resolved]
  - Pulmonary mass [Recovered/Resolved]
  - Hilar lymphadenopathy [Recovered/Resolved]
  - Febrile neutropenia [Recovered/Resolved]
  - Device related infection [Recovered/Resolved]
  - Disease recurrence [Recovered/Resolved]
  - Headache [Recovered/Resolved]
  - Metastases to bone [Recovered/Resolved]
  - Diarrhoea [Recovered/Resolved]

NARRATIVE: CASE EVENT DATE: 201506
